FAERS Safety Report 9641999 (Version 1)
Quarter: 2013Q4

REPORT INFORMATION
  Report Type: Spontaneous
  Country: ES (occurrence: ES)
  Receive Date: 20131023
  Receipt Date: 20131023
  Transmission Date: 20140711
  Serious: Yes (Death)
  Sender: FDA-Public Use
  Company Number: ES-UCBSA-100506

PATIENT
  Age: 59 Year
  Sex: Male

DRUGS (7)
  1. VIMPAT [Suspect]
     Indication: EPILEPSY
     Dosage: UNKNOWN
     Route: 048
     Dates: start: 201005
  2. VIMPAT [Suspect]
     Indication: EPILEPSY
     Route: 048
     Dates: start: 20100608, end: 20130906
  3. LABILEN [Concomitant]
     Indication: EPILEPSY
     Route: 048
     Dates: end: 20130906
  4. LABILEN [Concomitant]
     Indication: EPILEPSY
     Route: 048
     Dates: end: 20130906
  5. NOIAFREN [Concomitant]
     Indication: EPILEPSY
     Dosage: 1 TABLET IN BREAKFAST
     Route: 048
     Dates: end: 20130906
  6. NOIAFREN [Concomitant]
     Indication: EPILEPSY
     Dosage: 1 TABLET IN EVENING
     Route: 048
     Dates: end: 20130906
  7. ORFIDAL [Concomitant]
     Indication: ANXIETY
     Dosage: WHEN NEEDED
     Route: 048

REACTIONS (1)
  - Completed suicide [Fatal]
